FAERS Safety Report 15649251 (Version 1)
Quarter: 2018Q4

REPORT INFORMATION
  Report Type: Spontaneous
  Country: PL (occurrence: PL)
  Receive Date: 20181122
  Receipt Date: 20181122
  Transmission Date: 20190205
  Serious: Yes (Death, Other)
  Sender: FDA-Public Use
  Company Number: PL-009507513-1811POL007464

PATIENT
  Age: 45 Year
  Sex: Male

DRUGS (2)
  1. PEMBROLIZUMAB. [Suspect]
     Active Substance: PEMBROLIZUMAB
     Dosage: UNK
     Dates: start: 201705
  2. DOCETAXEL. [Concomitant]
     Active Substance: DOCETAXEL
     Dosage: UNK
     Dates: start: 201610, end: 201703

REACTIONS (5)
  - Skin disorder [Unknown]
  - Death [Fatal]
  - Intracranial pressure increased [Unknown]
  - General physical health deterioration [Unknown]
  - Disease progression [Unknown]

NARRATIVE: CASE EVENT DATE: 201705
